FAERS Safety Report 7760869-X (Version None)
Quarter: 2011Q3

REPORT INFORMATION
  Report Type: 
  Country: None (occurrence: None)
  Receive Date: 20110919
  Receipt Date: 20110916
  Transmission Date: 20111222
  Serious: Yes (Other)
  Sender: FDA-Public Use
  Company Number: US-PFIZER INC-2011220431

PATIENT
  Sex: Female
  Weight: 63.946 kg

DRUGS (8)
  1. CHANTIX [Suspect]
     Indication: SMOKING CESSATION THERAPY
     Dosage: 0.5 MG, 1X/DAY
     Route: 048
     Dates: start: 20110916
  2. ROZEREM [Concomitant]
     Indication: INSOMNIA
     Dosage: 50 MG, 1X/DAY
  3. LAMICTAL [Concomitant]
     Dosage: 8 MG, UNK
  4. HYDROCHLOROTHIAZIDE [Concomitant]
     Dosage: 25 MG, UNK
  5. POTASSIUM [Concomitant]
     Dosage: UNK
  6. EFFEXOR [Concomitant]
     Dosage: 225 MG, UNK
  7. KLONOPIN [Concomitant]
     Dosage: 2 MG, 3X/DAY
  8. LISINOPRIL [Concomitant]
     Dosage: 10 MG, UNK

REACTIONS (7)
  - GAIT DISTURBANCE [None]
  - NAUSEA [None]
  - DYSSTASIA [None]
  - FATIGUE [None]
  - DISTURBANCE IN ATTENTION [None]
  - SOMNOLENCE [None]
  - SPEECH DISORDER [None]
